FAERS Safety Report 5239391-0 (Version None)
Quarter: 2007Q1

REPORT INFORMATION
  Report Type: 
  Country: None (occurrence: None)
  Receive Date: 20070216
  Receipt Date: 20070205
  Transmission Date: 20070707
  Serious: Yes (Death, Hospitalization)
  Sender: FDA-Public Use
  Company Number: ES-BRISTOL-MYERS SQUIBB COMPANY-13471818

PATIENT
  Age: 75 Year
  Sex: Male

DRUGS (4)
  1. CETUXIMAB [Suspect]
     Indication: COLORECTAL CANCER
     Route: 041
     Dates: start: 20060629, end: 20060629
  2. OXALIPLATIN [Suspect]
     Indication: COLORECTAL CANCER
     Route: 042
     Dates: start: 20060629, end: 20060629
  3. FOLINIC ACID [Suspect]
     Indication: COLORECTAL CANCER
     Route: 042
     Dates: start: 20060116, end: 20060630
  4. FLUOROURACIL [Suspect]
     Indication: COLORECTAL CANCER
     Route: 042
     Dates: start: 20060116, end: 20060630

REACTIONS (3)
  - ASTHENIA [None]
  - DYSPNOEA [None]
  - INTERSTITIAL LUNG DISEASE [None]
